FAERS Safety Report 6639138-7 (Version None)
Quarter: 2010Q1

REPORT INFORMATION
  Report Type: 
  Country: None (occurrence: None)
  Receive Date: 20100312
  Receipt Date: 20100311
  Transmission Date: 20100710
  Serious: Yes (Death, Hospitalization)
  Sender: FDA-Public Use
  Company Number: 2008SP007730

PATIENT
  Age: 59 Year
  Sex: Female
  Weight: 52.5 kg

DRUGS (10)
  1. TEMODAL [Suspect]
     Indication: EPENDYMOMA MALIGNANT
     Dosage: 150 MG/M2;QD;PO; 200 MG/M2;QD;PO; 200 MG/M2;QD;PO
     Route: 048
     Dates: start: 20061106, end: 20061110
  2. TEMODAL [Suspect]
     Indication: EPENDYMOMA MALIGNANT
     Dosage: 150 MG/M2;QD;PO; 200 MG/M2;QD;PO; 200 MG/M2;QD;PO
     Route: 048
     Dates: start: 20061204, end: 20061208
  3. TEMODAL [Suspect]
     Indication: EPENDYMOMA MALIGNANT
     Dosage: 150 MG/M2;QD;PO; 200 MG/M2;QD;PO; 200 MG/M2;QD;PO
     Route: 048
     Dates: start: 20070102, end: 20070105
  4. DEPAKENE-R (CON.) [Concomitant]
  5. PRIMPERAN (CON.) [Concomitant]
  6. NAVOBAN (CON.) [Concomitant]
  7. NAUZELIN (CON.) [Concomitant]
  8. PHENOBAL (CON.) [Concomitant]
  9. MAGNESIUM OXIDE (CON.) [Concomitant]
  10. EXCEGRAN (CON.) [Concomitant]

REACTIONS (4)
  - ACTIVITIES OF DAILY LIVING IMPAIRED [None]
  - ANAPLASTIC ASTROCYTOMA [None]
  - NAUSEA [None]
  - NEOPLASM PROGRESSION [None]
